FAERS Safety Report 6806194-2 (Version None)
Quarter: 2010Q2

REPORT INFORMATION
  Report Type: 
  Country: None (occurrence: None)
  Receive Date: 20100629
  Receipt Date: 20100614
  Transmission Date: 20101027
  Serious: Yes (Other)
  Sender: FDA-Public Use
  Company Number: US-AMGEN-US291128

PATIENT
  Sex: Female
  Weight: 71.27 kg

DRUGS (7)
  1. ENBREL [Suspect]
     Indication: RHEUMATOID ARTHRITIS
     Dosage: 25 MG TWICE WEEKLY
     Route: 058
     Dates: start: 19981223, end: 19990405
  2. ENBREL [Suspect]
     Route: 058
     Dates: start: 19990420, end: 19990514
  3. METHOTREXATE [Concomitant]
     Dates: start: 19980101, end: 19990202
  4. SYNTHROID [Concomitant]
  5. ZESTRIL [Concomitant]
  6. CORGARD [Concomitant]
  7. HYDROCHLOROTHIAZIDE [Concomitant]

REACTIONS (10)
  - BACK PAIN [None]
  - BLOOD CREATININE INCREASED [None]
  - COSTOVERTEBRAL ANGLE TENDERNESS [None]
  - DYSPNOEA [None]
  - EXERCISE TOLERANCE DECREASED [None]
  - GRANULOMA [None]
  - HAEMATURIA [None]
  - LYMPHADENOPATHY [None]
  - PRODUCTIVE COUGH [None]
  - RHEUMATOID ARTHRITIS [None]
